FAERS Safety Report 10023138 (Version 2)
Quarter: 2014Q1

REPORT INFORMATION
  Report Type: Spontaneous
  Country: DE (occurrence: DE)
  Receive Date: 20140320
  Receipt Date: 20140320
  Transmission Date: 20141002
  Serious: Yes (Other)
  Sender: FDA-Public Use
  Company Number: DE-ROCHE-1356452

PATIENT
  Age: 41 Year
  Sex: Female
  Weight: 56 kg

DRUGS (11)
  1. VALCYTE [Suspect]
     Indication: PROPHYLAXIS
     Route: 048
     Dates: start: 20110924, end: 20120112
  2. CYMEVENE [Suspect]
     Indication: PROPHYLAXIS
     Route: 042
     Dates: start: 201201, end: 201201
  3. PROGRAF [Concomitant]
     Route: 048
     Dates: start: 20110924
  4. CELLCEPT [Concomitant]
     Route: 048
     Dates: start: 20110924
  5. PREDNISOLON [Concomitant]
     Route: 048
     Dates: start: 20110924
  6. ESIDRIX [Concomitant]
     Route: 048
  7. CARMEN (GERMANY) [Concomitant]
     Route: 065
  8. PANTOZOL (GERMANY) [Concomitant]
     Route: 065
  9. COTRIM FORTE [Concomitant]
     Route: 065
  10. DEKRISTOL [Concomitant]
  11. FOSCARNET [Concomitant]
     Route: 065
     Dates: start: 20120118

REACTIONS (4)
  - Cytomegalovirus infection [Unknown]
  - Drug resistance [Unknown]
  - Drug ineffective [Unknown]
  - Drug resistance [Unknown]
